FAERS Safety Report 7648348-1 (Version None)
Quarter: 2011Q3

REPORT INFORMATION
  Report Type: 
  Country: None (occurrence: None)
  Receive Date: 20110801
  Receipt Date: 20110721
  Transmission Date: 20111222
  Serious: Yes (Hospitalization, Other)
  Sender: FDA-Public Use
  Company Number: US-ASTRAZENECA-2011SE30618

PATIENT
  Age: 72 Year
  Sex: Female

DRUGS (4)
  1. NEXIUM [Suspect]
     Route: 048
  2. CRESTOR [Suspect]
     Route: 048
  3. NEXIUM [Suspect]
     Route: 048
  4. PLAVIX [Concomitant]

REACTIONS (5)
  - FALL [None]
  - FACE INJURY [None]
  - IMPAIRED HEALING [None]
  - MYOCARDIAL INFARCTION [None]
  - PNEUMONIA [None]
